FAERS Safety Report 25875834 (Version 1)
Quarter: 2025Q4

REPORT INFORMATION
  Report Type: Spontaneous
  Country: IL (occurrence: IL)
  Receive Date: 20251003
  Receipt Date: 20251003
  Transmission Date: 20260118
  Serious: Yes (Life-Threatening, Hospitalization)
  Sender: ACCORD
  Company Number: IL-MLMSERVICE-20250912-PI643436-00136-1

PATIENT
  Age: 60 Year
  Sex: Female

DRUGS (1)
  1. ESCITALOPRAM [Suspect]
     Active Substance: ESCITALOPRAM OXALATE
     Indication: Depression

REACTIONS (5)
  - Post procedural haematoma [Unknown]
  - Hypovolaemic shock [Unknown]
  - Metabolic acidosis [Unknown]
  - Haemoglobin decreased [Unknown]
  - Disseminated intravascular coagulation [Unknown]
